FAERS Safety Report 24288073 (Version 1)
Quarter: 2024Q3

REPORT INFORMATION
  Report Type: Spontaneous
  Country: US (occurrence: None)
  Receive Date: 20240905
  Receipt Date: 20240905
  Transmission Date: 20241017
  Serious: Yes (Life-Threatening, Hospitalization)
  Sender: Public
  Company Number: None

PATIENT
  Age: 50 Year
  Sex: Male
  Weight: 74.84 kg

DRUGS (4)
  1. HERBALS\TETRAHYDROCANNABINOL MIXED [Suspect]
     Active Substance: HERBALS\TETRAHYDROCANNABINOL MIXED
  2. PRILOSEC OTC [Concomitant]
     Active Substance: OMEPRAZOLE MAGNESIUM
  3. TESTOSTERONE CYPIONATE [Concomitant]
     Active Substance: TESTOSTERONE CYPIONATE
  4. Vitafusion omega-3 gummy multivitamin [Concomitant]

REACTIONS (4)
  - Agitation [None]
  - Paranoia [None]
  - Mania [None]
  - Psychotic disorder [None]

NARRATIVE: CASE EVENT DATE: 20240819
